FAERS Safety Report 9915134 (Version 1)
Quarter: 2014Q1

REPORT INFORMATION
  Report Type: Spontaneous
  Country: FR (occurrence: FR)
  Receive Date: 20140220
  Receipt Date: 20140220
  Transmission Date: 20141002
  Serious: Yes (Other)
  Sender: FDA-Public Use
  Company Number: FR-ELI_LILLY_AND_COMPANY-FR201402003178

PATIENT
  Age: 86 Year
  Sex: Female

DRUGS (1)
  1. FORSTEO [Suspect]
     Indication: PRODUCT USED FOR UNKNOWN INDICATION
     Dosage: 20 UG, UNKNOWN
     Route: 065
     Dates: start: 201301

REACTIONS (2)
  - Femoral neck fracture [Unknown]
  - Fall [Unknown]
